FAERS Safety Report 5766311-2 (Version None)
Quarter: 2008Q2

REPORT INFORMATION
  Report Type: 
  Country: None (occurrence: None)
  Receive Date: 20080611
  Receipt Date: 20080605
  Transmission Date: 20081010
  Serious: Yes (Hospitalization)
  Sender: FDA-Public Use
  Company Number: AU-MERCK-0806AUS00026

PATIENT
  Age: 70 Year
  Sex: Male

DRUGS (2)
  1. FOSAMAX [Suspect]
     Route: 048
     Dates: start: 20040101
  2. CALCITRIOL [Concomitant]
     Route: 065

REACTIONS (1)
  - FEMUR FRACTURE [None]
